FAERS Safety Report 18381460 (Version 1)
Quarter: 2020Q4

REPORT INFORMATION
  Report Type: Spontaneous
  Country: US (occurrence: US)
  Receive Date: 20201014
  Receipt Date: 20201014
  Transmission Date: 20210114
  Serious: No
  Sender: FDA-Public Use
  Company Number: US-TEVA-2020-US-1837675

PATIENT
  Age: 70 Year
  Sex: Female

DRUGS (1)
  1. PRAVASTATIN SODIUM. [Suspect]
     Active Substance: PRAVASTATIN SODIUM
     Dosage: 40 MILLIGRAM DAILY;
     Route: 065
     Dates: start: 202008, end: 202009

REACTIONS (10)
  - Sexual dysfunction [Recovering/Resolving]
  - Arthralgia [Recovering/Resolving]
  - Heart rate irregular [Recovering/Resolving]
  - Anorgasmia [Not Recovered/Not Resolved]
  - Palpitations [Recovering/Resolving]
  - Back pain [Recovering/Resolving]
  - Drug intolerance [Unknown]
  - Incontinence [Recovering/Resolving]
  - Joint stiffness [Recovering/Resolving]
  - Urinary tract disorder [Not Recovered/Not Resolved]

NARRATIVE: CASE EVENT DATE: 2020
